FAERS Safety Report 5048491-X (Version None)
Quarter: 2006Q3

REPORT INFORMATION
  Report Type: 
  Country: None (occurrence: None)
  Receive Date: 20060705
  Receipt Date: 20060628
  Transmission Date: 20061208
  Serious: Yes (Hospitalization)
  Sender: FDA-Public Use
  Company Number: 0601978US

PATIENT
  Age: 76 Year
  Sex: Male

DRUGS (2)
  1. ALESION TABLET(EPINASTINE HYDROCHLORIDE) TABLET, 10MG [Suspect]
     Indication: PSORIASIS
     Dosage: 20 MG, ORAL
     Route: 048
     Dates: start: 20060501
  2. ALLOPURINOL [Suspect]
     Dosage: ORAL
     Route: 048

REACTIONS (1)
  - PLATELET COUNT DECREASED [None]
